FAERS Safety Report 7530961-3 (Version None)
Quarter: 2011Q2

REPORT INFORMATION
  Report Type: 
  Country: None (occurrence: None)
  Receive Date: 20110608
  Receipt Date: 20110604
  Transmission Date: 20111010
  Serious: Yes (Other)
  Sender: FDA-Public Use
  Company Number: US-AMGEN-USASP2011026316

PATIENT
  Age: 54 Year
  Sex: Female
  Weight: 79.365 kg

DRUGS (19)
  1. MACROBID [Concomitant]
     Dosage: 100 MG, UNK
  2. PHENAZOPYRIDINE HCL TAB [Concomitant]
     Dosage: 200 MG, UNK
  3. FISH OIL [Concomitant]
     Dosage: 1000 MG, UNK
  4. FERROUS SULFATE TAB [Concomitant]
     Dosage: 325 MG, UNK
  5. PNEUMOCOCCAL VACCINE [Concomitant]
  6. ZOCOR [Concomitant]
     Dosage: 40 MG, UNK
  7. GLUCOPHAGE [Concomitant]
     Dosage: 500 MG, UNK
  8. COREG [Concomitant]
     Dosage: 12.5 MG, UNK
  9. CORTICOSTEROIDS [Concomitant]
  10. NORCO [Concomitant]
  11. MENINGOCOCCAL VACCINE [Concomitant]
  12. VITAMIN D [Concomitant]
     Dosage: 1000 UNIT, UNK
  13. CYANOCOBALAMIN [Concomitant]
  14. NPLATE [Suspect]
     Indication: IDIOPATHIC THROMBOCYTOPENIC PURPURA
     Dosage: 230 A?G, UNK
     Dates: start: 20101021
  15. HAEMOPHILUS INFLUENZAE VACCINE [Concomitant]
  16. NEURONTIN [Concomitant]
     Dosage: 300 MG, UNK
  17. PAMELOR [Concomitant]
     Dosage: 50 MG, UNK
  18. EFFEXOR XR [Concomitant]
     Dosage: 150 MG, UNK
  19. PRILOSEC [Concomitant]
     Dosage: 20 MG, UNK

REACTIONS (2)
  - THROMBOCYTOPENIA [None]
  - PLATELET COUNT INCREASED [None]
